FAERS Safety Report 25909247 (Version 1)
Quarter: 2025Q4

REPORT INFORMATION
  Report Type: Spontaneous
  Country: US (occurrence: US)
  Receive Date: 20251011
  Receipt Date: 20251011
  Transmission Date: 20260117
  Serious: Yes (Hospitalization, Other)
  Sender: SLATE RUN
  Company Number: US-SLATERUN-2025SRLIT00205

PATIENT
  Age: 30 Year
  Sex: Male

DRUGS (1)
  1. AMIODARONE HYDROCHLORIDE [Suspect]
     Active Substance: AMIODARONE HYDROCHLORIDE
     Indication: Atrial fibrillation
     Dosage: DILUTED IN DEXTROSE AT A CONCENTRATION OF 150 MG/100 ML
     Route: 042

REACTIONS (2)
  - Skin necrosis [Recovering/Resolving]
  - Administration site extravasation [Recovering/Resolving]
